FAERS Safety Report 12583655 (Version 7)
Quarter: 2019Q4

REPORT INFORMATION
  Report Type: Report from Study
  Country: US (occurrence: US)
  Receive Date: 20160722
  Receipt Date: 20191101
  Transmission Date: 20200122
  Serious: Yes (Other)
  Sender: FDA-Public Use
  Company Number: PHHY2016US099449

PATIENT
  Age: 48 Year
  Sex: Female

DRUGS (1)
  1. GILENYA [Suspect]
     Active Substance: FINGOLIMOD HYDROCHLORIDE
     Indication: MULTIPLE SCLEROSIS
     Dosage: UNK, QD
     Route: 048

REACTIONS (14)
  - Aspartate aminotransferase increased [Unknown]
  - Temperature intolerance [Recovered/Resolved]
  - Dermatitis [Not Recovered/Not Resolved]
  - Alanine aminotransferase increased [Unknown]
  - Melanocytic naevus [Recovered/Resolved]
  - Fibrous histiocytoma [Recovered/Resolved]
  - Blood pressure increased [Unknown]
  - Dysplastic naevus [Not Recovered/Not Resolved]
  - Lymphocyte count decreased [Unknown]
  - Lymphopenia [Recovered/Resolved]
  - Dizziness [Recovered/Resolved]
  - Blood bilirubin decreased [Unknown]
  - White blood cell count decreased [Unknown]
  - Skin lesion [Not Recovered/Not Resolved]

NARRATIVE: CASE EVENT DATE: 20160211
